FAERS Safety Report 5647383-2 (Version None)
Quarter: 2008Q1

REPORT INFORMATION
  Report Type: 
  Country: None (occurrence: None)
  Receive Date: 20080229
  Receipt Date: 20080229
  Transmission Date: 20080703
  Serious: Yes (Hospitalization, Other)
  Sender: FDA-Public Use
  Company Number: None

PATIENT
  Sex: Female
  Weight: 61.2356 kg

DRUGS (1)
  1. BOTOX COSMETIC LOT# C2023 EXP 4/10 [Suspect]
     Indication: SKIN COSMETIC PROCEDURE
     Dosage: 60UNITS 1X SQ/IM
     Route: 058
     Dates: start: 20080114

REACTIONS (15)
  - ABASIA [None]
  - ASTHENIA [None]
  - BLOOD CREATINE PHOSPHOKINASE INCREASED [None]
  - COGNITIVE DISORDER [None]
  - DYSARTHRIA [None]
  - DYSPHAGIA [None]
  - FACIAL PALSY [None]
  - FALL [None]
  - HEADACHE [None]
  - INFLUENZA LIKE ILLNESS [None]
  - MYALGIA [None]
  - PERSONALITY CHANGE [None]
  - RESPIRATORY DISORDER [None]
  - TREMOR [None]
  - VERTIGO [None]
